FAERS Safety Report 19467368 (Version 1)
Quarter: 2021Q2

REPORT INFORMATION
  Report Type: Spontaneous
  Country: US (occurrence: US)
  Receive Date: 20210625
  Receipt Date: 20210625
  Transmission Date: 20210717
  Serious: Yes (Hospitalization)
  Sender: FDA-Public Use
  Company Number: None

PATIENT
  Sex: Female

DRUGS (11)
  1. PROMETHAZINE [Concomitant]
     Active Substance: PROMETHAZINE HYDROCHLORIDE
  2. ENOXAPARIN [Concomitant]
     Active Substance: ENOXAPARIN
  3. PREDNISONE. [Concomitant]
     Active Substance: PREDNISONE
  4. ONDANSETRON [Concomitant]
     Active Substance: ONDANSETRON
  5. ENBREL [Suspect]
     Active Substance: ETANERCEPT
     Indication: RHEUMATOID ARTHRITIS
     Route: 058
     Dates: start: 20210224
  6. APAP/CODEINE [Concomitant]
     Active Substance: ACETAMINOPHEN\CODEINE PHOSPHATE
  7. CHLORHEX GLU [Concomitant]
     Active Substance: CHLORHEXIDINE GLUCONATE
  8. VITAMIN D [Concomitant]
     Active Substance: VITAMIN D NOS
  9. AMOXICILLIN. [Concomitant]
     Active Substance: AMOXICILLIN
  10. CIPROFLOXACIN. [Concomitant]
     Active Substance: CIPROFLOXACIN
  11. OSELTAMIVIR [Concomitant]
     Active Substance: OSELTAMIVIR

REACTIONS (1)
  - Influenza like illness [None]
